FAERS Safety Report 8018433-3 (Version None)
Quarter: 2012Q1

REPORT INFORMATION
  Report Type: 
  Country: None (occurrence: None)
  Receive Date: 20120103
  Receipt Date: 20111225
  Transmission Date: 20120608
  Serious: No
  Sender: FDA-Public Use
  Company Number: IL-NOVOPROD-341824

PATIENT

DRUGS (1)
  1. LIRAGLUTIDE FLEXPEN [Suspect]
     Indication: OBESITY
     Dosage: 0.6 MG, QD
     Route: 058
     Dates: start: 20110717

REACTIONS (2)
  - INJECTION SITE REACTION [None]
  - DERMATITIS ALLERGIC [None]
